FAERS Safety Report 21247120 (Version 3)
Quarter: 2022Q4

REPORT INFORMATION
  Report Type: Spontaneous
  Country: US (occurrence: US)
  Receive Date: 20220824
  Receipt Date: 20221121
  Transmission Date: 20230113
  Serious: No
  Sender: FDA-Public Use
  Company Number: US-BRISTOL-MYERS SQUIBB COMPANY-2022-094500

PATIENT
  Age: 46 Year
  Sex: Male

DRUGS (2)
  1. SPRYCEL [Suspect]
     Active Substance: DASATINIB
     Indication: Chronic myeloid leukaemia
     Dosage: 100 MG, DAILY
     Route: 048
     Dates: start: 20220729
  2. SPRYCEL [Suspect]
     Active Substance: DASATINIB
     Dosage: 100 MG, DAILY
     Route: 048
     Dates: start: 20220708

REACTIONS (9)
  - Depression [Unknown]
  - Adverse event [Unknown]
  - Dyspnoea [Unknown]
  - Heart rate increased [Unknown]
  - Myalgia [Unknown]
  - Muscle spasms [Unknown]
  - Bone pain [Unknown]
  - Pain in extremity [Unknown]
  - Arthralgia [Unknown]
